FAERS Safety Report 4943981-X (Version None)
Quarter: 2006Q1

REPORT INFORMATION
  Report Type: 
  Country: None (occurrence: None)
  Receive Date: 20060313
  Receipt Date: 20060313
  Transmission Date: 20060701
  Serious: No
  Sender: FDA-Public Use
  Company Number: None

PATIENT
  Age: 52 Year
  Sex: Male
  Weight: 106.5953 kg

DRUGS (2)
  1. HALDOL [Suspect]
     Indication: PSYCHOTIC DISORDER
     Dosage: 150 MG IM 1X  15 MG PO DAILY
     Route: 030
     Dates: start: 20060105, end: 20060215
  2. LITHIUM [Suspect]
     Indication: MANIA
     Dosage: LI 900 -} 2100 PO DAILY
     Route: 048
     Dates: start: 20060124, end: 20060215

REACTIONS (6)
  - CONDITION AGGRAVATED [None]
  - CONFUSIONAL STATE [None]
  - DELUSION [None]
  - GAIT DISTURBANCE [None]
  - NEUROTOXICITY [None]
  - SPEECH DISORDER [None]
